FAERS Safety Report 10308542 (Version 1)
Quarter: 2014Q3

REPORT INFORMATION
  Report Type: Spontaneous
  Country: FR (occurrence: FR)
  Receive Date: 20140716
  Receipt Date: 20140716
  Transmission Date: 20150326
  Serious: Yes (Other)
  Sender: FDA-Public Use
  Company Number: PHHY2014FR087078

PATIENT
  Age: 73 Year
  Sex: Female

DRUGS (8)
  1. VANCOMYCIN [Suspect]
     Active Substance: VANCOMYCIN
     Indication: OFF LABEL USE
  2. GENTAMICIN [Suspect]
     Active Substance: GENTAMICIN
     Indication: ENDOCARDITIS
  3. GENTAMICIN [Suspect]
     Active Substance: GENTAMICIN
     Indication: ENDOCARDITIS STAPHYLOCOCCAL
     Route: 065
  4. CUBICIN [Suspect]
     Active Substance: DAPTOMYCIN
     Indication: ENDOCARDITIS
  5. CUBICIN [Suspect]
     Active Substance: DAPTOMYCIN
     Indication: OFF LABEL USE
  6. VANCOMYCIN [Suspect]
     Active Substance: VANCOMYCIN
     Indication: ENDOCARDITIS
  7. CUBICIN [Suspect]
     Active Substance: DAPTOMYCIN
     Indication: ENDOCARDITIS STAPHYLOCOCCAL
     Route: 065
  8. VANCOMYCIN [Suspect]
     Active Substance: VANCOMYCIN
     Indication: ENDOCARDITIS STAPHYLOCOCCAL
     Route: 065

REACTIONS (3)
  - Pyrexia [Unknown]
  - Blood culture positive [Unknown]
  - Cardiac valve vegetation [Unknown]
